FAERS Safety Report 8129347-2 (Version None)
Quarter: 2012Q1

REPORT INFORMATION
  Report Type: 
  Country: None (occurrence: None)
  Receive Date: 20120210
  Receipt Date: 20120131
  Transmission Date: 20120608
  Serious: Yes (Hospitalization)
  Sender: FDA-Public Use
  Company Number: PT-MERCK-1202USA00575

PATIENT
  Age: 72 Year
  Sex: Male

DRUGS (5)
  1. ZOLEDRONIC ACID [Concomitant]
     Indication: PROPHYLAXIS
     Route: 042
  2. DECADRON [Suspect]
     Indication: MULTIPLE MYELOMA
     Dosage: 4 DAYS, MONTHLY CYCLE
     Route: 048
     Dates: start: 20100701, end: 20100701
  3. ACYCLOVIR [Concomitant]
     Indication: PROPHYLAXIS
     Route: 048
  4. LENALIDOMIDE [Suspect]
     Indication: MULTIPLE MYELOMA
     Dosage: FOR 21 DAYS, MONTHLY CYCLE
     Route: 048
     Dates: start: 20100701, end: 20100101
  5. LENALIDOMIDE [Suspect]
     Dosage: FOR 21 DAYS, MONTHLY CYCLE
     Route: 048
     Dates: start: 20100101

REACTIONS (1)
  - PULMONARY EMBOLISM [None]
